FAERS Safety Report 5681349-1 (Version None)
Quarter: 2008Q1

REPORT INFORMATION
  Report Type: 
  Country: None (occurrence: None)
  Receive Date: 20080326
  Receipt Date: 20070120
  Transmission Date: 20080703
  Serious: No
  Sender: FDA-Public Use
  Company Number: US-BAYER-US-2007-002324

PATIENT
  Age: 48 Year
  Sex: Female
  Weight: 63 kg

DRUGS (4)
  1. MIRENA [Suspect]
     Indication: CONTRACEPTION
     Route: 015
     Dates: start: 20060714
  2. XANAX [Concomitant]
     Indication: ANXIETY
     Dosage: UNIT DOSE: 0.5 MG
     Dates: start: 20030101
  3. SERZONE [Concomitant]
     Indication: DEPRESSION
     Dates: start: 20030101
  4. MINOCIN [Concomitant]
     Indication: ROSACEA
     Dosage: UNIT DOSE: 100 MG

REACTIONS (1)
  - METRORRHAGIA [None]
